FAERS Safety Report 4324662-2 (Version None)
Quarter: 2004Q1

REPORT INFORMATION
  Report Type: 
  Country: None (occurrence: None)
  Receive Date: 20040322
  Receipt Date: 20040310
  Transmission Date: 20041129
  Serious: Yes (Hospitalization)
  Sender: FDA-Public Use
  Company Number: JP-JNJFOC-20031200084

PATIENT
  Age: 46 Year
  Sex: Male

DRUGS (2)
  1. LEVOFLOXACIN [Suspect]
     Indication: BRONCHOPNEUMONIA
     Dosage: 500 MG, ORAL
     Route: 048
     Dates: start: 20031105, end: 20031110
  2. ANTIPYRETIC (OTHER ANALGESICS AND ANTIPYRETICS) [Concomitant]

REACTIONS (5)
  - AMNESIA [None]
  - CONFUSIONAL STATE [None]
  - IRRITABILITY [None]
  - PYREXIA [None]
  - SOMNOLENCE [None]
